FAERS Safety Report 24601954 (Version 1)
Quarter: 2024Q4

REPORT INFORMATION
  Report Type: Spontaneous
  Country: DE (occurrence: DE)
  Receive Date: 20241111
  Receipt Date: 20241111
  Transmission Date: 20250115
  Serious: Yes (Other)
  Sender: DR REDDYS
  Company Number: DE-GERMAN-LIT/DEU/24/0016601

PATIENT

DRUGS (1)
  1. PRASUGREL [Suspect]
     Active Substance: PRASUGREL
     Indication: Antiplatelet therapy

REACTIONS (3)
  - Subarachnoid haemorrhage [Unknown]
  - Hemiparesis [Unknown]
  - Aphasia [Unknown]
